FAERS Safety Report 16758787 (Version 1)
Quarter: 2019Q3

REPORT INFORMATION
  Report Type: Spontaneous
  Country: LB (occurrence: LB)
  Receive Date: 20190830
  Receipt Date: 20190830
  Transmission Date: 20191005
  Serious: Yes (Hospitalization)
  Sender: FDA-Public Use
  Company Number: LB-ABBVIE-19K-093-2906627-00

PATIENT
  Age: 0 Year
  Sex: Male

DRUGS (2)
  1. SURVANTA [Suspect]
     Active Substance: BERACTANT
     Indication: PRODUCT USED FOR UNKNOWN INDICATION
     Route: 039
     Dates: start: 20190406, end: 20190406
  2. SURVANTA [Suspect]
     Active Substance: BERACTANT
     Route: 039
     Dates: start: 20190427, end: 20190427

REACTIONS (4)
  - Oxygen saturation abnormal [Recovered/Resolved]
  - Off label use [Recovered/Resolved]
  - Pneumonia [Recovered/Resolved]
  - Lung disorder [Recovered/Resolved]

NARRATIVE: CASE EVENT DATE: 201904
